FAERS Safety Report 24621405 (Version 1)
Quarter: 2024Q4

REPORT INFORMATION
  Report Type: Spontaneous
  Country: RO (occurrence: RO)
  Receive Date: 20241114
  Receipt Date: 20241114
  Transmission Date: 20250115
  Serious: Yes (Death)
  Sender: PFIZER
  Company Number: RO-PFIZER INC-PV202400146682

PATIENT
  Age: 66 Year
  Sex: Male

DRUGS (4)
  1. MEDROL [Suspect]
     Active Substance: METHYLPREDNISOLONE
     Indication: Rheumatoid arthritis
  2. PLAQUENIL [Suspect]
     Active Substance: HYDROXYCHLOROQUINE SULFATE
     Indication: Rheumatoid arthritis
  3. SULFASALAZINE [Suspect]
     Active Substance: SULFASALAZINE
     Indication: Rheumatoid arthritis
  4. OXYGEN [Concomitant]
     Active Substance: OXYGEN

REACTIONS (1)
  - Drug ineffective [Fatal]
